FAERS Safety Report 10183820 (Version 1)
Quarter: 2014Q2

REPORT INFORMATION
  Report Type: Spontaneous
  Country: RO (occurrence: RO)
  Receive Date: 20140520
  Receipt Date: 20140520
  Transmission Date: 20141212
  Serious: Yes (Death, Congenital Anomaly, Other)
  Sender: FDA-Public Use
  Company Number: RO-ACTAVIS-2014-10382

PATIENT
  Sex: Female

DRUGS (2)
  1. CARBAMAZEPINE (UNKNOWN) [Suspect]
     Indication: PARTIAL SEIZURES
     Dosage: 0.4 G, DAILY
     Route: 064
  2. PHENOBARBITAL (UNKNOWN) [Interacting]
     Indication: PARTIAL SEIZURES
     Dosage: 0.1 G, DAILY
     Route: 064

REACTIONS (15)
  - Sirenomelia [Fatal]
  - Foetal death [Fatal]
  - Anal atresia [Fatal]
  - Urethral atresia [Fatal]
  - Renal aplasia [Fatal]
  - Bladder agenesis [Fatal]
  - Anorectal agenesis [Fatal]
  - Uterine aplasia [Fatal]
  - Foetal exposure during pregnancy [Fatal]
  - Drug interaction [Fatal]
  - Congenital nose malformation [Not Recovered/Not Resolved]
  - Low set ears [Not Recovered/Not Resolved]
  - Ear malformation [Not Recovered/Not Resolved]
  - Brachydactyly [Not Recovered/Not Resolved]
  - Dysmorphism [Not Recovered/Not Resolved]
